FAERS Safety Report 22134008 (Version 1)
Quarter: 2023Q1

REPORT INFORMATION
  Report Type: Report from Study
  Country: US (occurrence: US)
  Receive Date: 20230324
  Receipt Date: 20230324
  Transmission Date: 20230418
  Serious: Yes (Hospitalization, Other)
  Sender: FDA-Public Use
  Company Number: US-ABBVIE-4700834

PATIENT
  Sex: Male

DRUGS (1)
  1. VENCLEXTA [Suspect]
     Active Substance: VENETOCLAX
     Indication: Product used for unknown indication
     Dosage: FORM STRENGTH: 50 MILLIGRAM, DOSE/ FREQUENCY: TAKE 1 TABLET BY MOUTH DAILY WITH FOOD AND WATER AT...
     Route: 048

REACTIONS (1)
  - Haematological infection [Unknown]
